FAERS Safety Report 4356591-2 (Version None)
Quarter: 2004Q2

REPORT INFORMATION
  Report Type: 
  Country: None (occurrence: None)
  Receive Date: 20040507
  Receipt Date: 20040426
  Transmission Date: 20050107
  Serious: Yes (Hospitalization)
  Sender: FDA-Public Use
  Company Number: US-JNJFOC-20040405499

PATIENT
  Age: 53 Year
  Sex: Female
  Weight: 68.0396 kg

DRUGS (12)
  1. INFLIXIMAB (INFLIXIMAB, RECOMBINANT) LYOPHILIZED POWDER [Suspect]
     Indication: RHEUMATOID ARTHRITIS
     Dosage: INTRAVENOUS
     Route: 042
     Dates: start: 20011220
  2. ACCUPRIL [Concomitant]
  3. LASIX [Concomitant]
  4. NORVASC [Concomitant]
  5. ALLEGRA [Concomitant]
  6. NEXIUM [Concomitant]
  7. METHOTREXATE [Concomitant]
  8. PLAQUENIL [Concomitant]
  9. FOLIC ACID [Concomitant]
  10. CALCIUM (CALCIUM) [Concomitant]
  11. HYZAAR [Concomitant]
  12. SULFADINE (SULFADIMIDINE) [Concomitant]

REACTIONS (11)
  - BLOOD CREATININE INCREASED [None]
  - BLOOD POTASSIUM DECREASED [None]
  - BLOOD SODIUM DECREASED [None]
  - BLOOD UREA INCREASED [None]
  - COLITIS [None]
  - DIARRHOEA [None]
  - GASTRITIS [None]
  - SALMONELLA BACTERAEMIA [None]
  - SEPSIS SYNDROME [None]
  - VOMITING [None]
  - WHITE BLOOD CELL COUNT INCREASED [None]
